FAERS Safety Report 24631772 (Version 1)
Quarter: 2024Q4

REPORT INFORMATION
  Report Type: Spontaneous
  Country: US (occurrence: None)
  Receive Date: 20241118
  Receipt Date: 20241118
  Transmission Date: 20250115
  Serious: No
  Sender: Public
  Company Number: None

PATIENT
  Age: 62 Year
  Sex: Female
  Weight: 61 kg

DRUGS (1)
  1. RIVAROXABAN [Suspect]
     Active Substance: RIVAROXABAN
     Indication: Deep vein thrombosis
     Dosage: FREQUENCY : DAILY;?
     Route: 048

REACTIONS (7)
  - Hernia [None]
  - Haemorrhage [None]
  - Nausea [None]
  - Vomiting [None]
  - Colitis [None]
  - Lactic acidosis [None]
  - Faecaloma [None]

NARRATIVE: CASE EVENT DATE: 20241004
